FAERS Safety Report 16018107 (Version 1)
Quarter: 2019Q1

REPORT INFORMATION
  Report Type: Spontaneous
  Country: US (occurrence: US)
  Receive Date: 20190228
  Receipt Date: 20190228
  Transmission Date: 20190418
  Serious: Yes (Other)
  Sender: FDA-Public Use
  Company Number: US-MALLINCKRODT-T201901857

PATIENT
  Age: 70 Year
  Sex: Male
  Weight: 83 kg

DRUGS (2)
  1. FENTANYL TRANSDERMAL SYSTEM [Suspect]
     Active Substance: FENTANYL
     Indication: BACK PAIN
     Dosage: 25 MCG, UNK
     Route: 062
  2. FENTANYL TRANSDERMAL SYSTEM [Suspect]
     Active Substance: FENTANYL
     Dosage: 100 MCG, EVERY 3-3.5 DAYS
     Route: 062

REACTIONS (5)
  - Tremor [Recovered/Resolved]
  - Spinal cord operation [Unknown]
  - Sleep disorder [Unknown]
  - Pyrexia [Not Recovered/Not Resolved]
  - Dizziness [Unknown]

NARRATIVE: CASE EVENT DATE: 201805
